FAERS Safety Report 4957582-0 (Version None)
Quarter: 2006Q1

REPORT INFORMATION
  Report Type: 
  Country: None (occurrence: None)
  Receive Date: 20060324
  Receipt Date: 20060307
  Transmission Date: 20060701
  Serious: Yes (Hospitalization)
  Sender: FDA-Public Use
  Company Number: USA040362587

PATIENT
  Age: 70 Year
  Sex: Female
  Weight: 65.5 kg

DRUGS (2)
  1. FORTEO [Suspect]
     Indication: OSTEOPOROSIS
     Dosage: 20 UG, DAILY (1/D), SUBCUTANEOUS
     Route: 058
     Dates: start: 20031001, end: 20041101
  2. FORTEO PEN, 250MCG/ML (3ML) (FORTEO PEN 250MCG/ML (3ML)) PEN, DISPOSAB [Concomitant]

REACTIONS (12)
  - BONE DISORDER [None]
  - CHEST DISCOMFORT [None]
  - CONTUSION [None]
  - COUGH [None]
  - DIZZINESS [None]
  - DYSPNOEA [None]
  - FALL [None]
  - HERPES ZOSTER [None]
  - INFLUENZA [None]
  - PHARMACEUTICAL PRODUCT COMPLAINT [None]
  - PNEUMONIA [None]
  - SYNCOPE [None]
